FAERS Safety Report 10188973 (Version 1)
Quarter: 2014Q2

REPORT INFORMATION
  Report Type: Spontaneous
  Country: US (occurrence: None)
  Receive Date: 20140521
  Receipt Date: 20140521
  Transmission Date: 20141212
  Serious: Yes (Disabling, Other)
  Sender: FDA-Public Use
  Company Number: None

PATIENT
  Age: 59 Year
  Sex: Female
  Weight: 47.63 kg

DRUGS (2)
  1. DEPO-MEDROL [Suspect]
     Indication: INTERVERTEBRAL DISC PROTRUSION
  2. DEPO-MEDROL [Suspect]
     Indication: SCIATICA

REACTIONS (9)
  - Pain [None]
  - Burning sensation [None]
  - Bladder disorder [None]
  - Gastrointestinal disorder [None]
  - Hypoaesthesia [None]
  - Hypoaesthesia [None]
  - Paraesthesia [None]
  - Neuralgia [None]
  - Arachnoiditis [None]
